FAERS Safety Report 12186313 (Version 1)
Quarter: 2016Q1

REPORT INFORMATION
  Report Type: Spontaneous
  Country: US (occurrence: US)
  Receive Date: 20160317
  Receipt Date: 20160317
  Transmission Date: 20160526
  Serious: No
  Sender: FDA-Public Use
  Company Number: US-ASTRAZENECA-2016SE25690

PATIENT
  Age: 605 Month
  Sex: Male
  Weight: 90.3 kg

DRUGS (1)
  1. BYDUREON [Suspect]
     Active Substance: EXENATIDE
     Indication: TYPE 2 DIABETES MELLITUS
     Route: 058
     Dates: start: 201601

REACTIONS (5)
  - Feeling hot [Unknown]
  - Malaise [Unknown]
  - Muscle spasms [Unknown]
  - Hunger [Unknown]
  - Injection site pain [Unknown]

NARRATIVE: CASE EVENT DATE: 201601
